FAERS Safety Report 8695828 (Version 2)
Quarter: 2012Q4

REPORT INFORMATION
  Report Type: 
  Country: PE (occurrence: PE)
  Receive Date: 20120731
  Receipt Date: 20121030
  Transmission Date: 20130627
  Serious: Yes (Other)
  Sender: FDA-Public Use
  Company Number: PE-ELI_LILLY_AND_COMPANY-PE201207009216

PATIENT
  Age: 32 Year
  Sex: Female

DRUGS (1)
  1. PROZAC [Suspect]
     Dosage: 20 mg, UNK

REACTIONS (2)
  - Leiomyoma [Unknown]
  - Vaginal haemorrhage [Unknown]
